FAERS Safety Report 13649349 (Version 2)
Quarter: 2017Q3

REPORT INFORMATION
  Report Type: Report from Study
  Country: None (occurrence: CA)
  Receive Date: 20170613
  Receipt Date: 20170720
  Transmission Date: 20171127
  Serious: Yes (Hospitalization)
  Sender: FDA-Public Use
  Company Number: CA-ABBVIE-17K-028-2003555-00

PATIENT
  Age: 55 Year
  Sex: Female
  Weight: 65.6 kg

DRUGS (2)
  1. HUMIRA [Suspect]
     Active Substance: ADALIMUMAB
     Indication: PSORIATIC ARTHROPATHY
     Route: 058
     Dates: start: 20170119, end: 20170510
  2. HUMIRA [Suspect]
     Active Substance: ADALIMUMAB
     Route: 058
     Dates: start: 201705, end: 20170609

REACTIONS (8)
  - Iron deficiency anaemia [Not Recovered/Not Resolved]
  - Peripheral swelling [Not Recovered/Not Resolved]
  - Dehydration [Recovered/Resolved]
  - Gastroenteritis [Recovered/Resolved]
  - Inflammatory marker increased [Not Recovered/Not Resolved]
  - Gallbladder oedema [Recovered/Resolved]
  - Gastrointestinal oedema [Recovered/Resolved]
  - Blood creatinine increased [Recovered/Resolved]

NARRATIVE: CASE EVENT DATE: 2017
